FAERS Safety Report 13967707 (Version 1)
Quarter: 2017Q3

REPORT INFORMATION
  Report Type: Report from Study
  Country: US (occurrence: US)
  Receive Date: 20170914
  Receipt Date: 20170914
  Transmission Date: 20171128
  Serious: No
  Sender: FDA-Public Use
  Company Number: US-AMGEN-USASL2017137889

PATIENT
  Sex: Female

DRUGS (2)
  1. ENBREL [Suspect]
     Active Substance: ETANERCEPT
     Dosage: UNK, EVERY 10 DAYS
     Route: 065
  2. ENBREL [Suspect]
     Active Substance: ETANERCEPT
     Indication: RHEUMATOID ARTHRITIS
     Dosage: UNK, QWK
     Route: 065

REACTIONS (4)
  - Skin infection [Unknown]
  - Arthropathy [Unknown]
  - Fatigue [Unknown]
  - Impaired healing [Unknown]
